FAERS Safety Report 22605627 (Version 2)
Quarter: 2023Q2

REPORT INFORMATION
  Report Type: Spontaneous
  Country: US (occurrence: US)
  Receive Date: 20230615
  Receipt Date: 20230620
  Transmission Date: 20230722
  Serious: Yes (Other)
  Sender: FDA-Public Use
  Company Number: US-PFIZER INC-202300219546

PATIENT
  Age: 62 Year
  Sex: Female
  Weight: 108.86 kg

DRUGS (4)
  1. IBRANCE [Suspect]
     Active Substance: PALBOCICLIB
     Indication: Liposarcoma
     Dosage: 2 TIMES
  2. IBRANCE [Suspect]
     Active Substance: PALBOCICLIB
     Indication: Liposarcoma
     Dosage: 125 MG
  3. ATORVASTATIN [Concomitant]
     Active Substance: ATORVASTATIN
     Indication: Blood cholesterol abnormal
     Dosage: UNK, 1X/DAY
  4. MONTELUKAST [Concomitant]
     Active Substance: MONTELUKAST SODIUM
     Indication: Asthma
     Dosage: 10 MG, DAILY

REACTIONS (6)
  - Mental impairment [Unknown]
  - Cognitive disorder [Unknown]
  - Amnesia [Unknown]
  - Emotional distress [Unknown]
  - Mental disorder [Unknown]
  - Off label use [Unknown]
